FAERS Safety Report 5613347-8 (Version None)
Quarter: 2008Q1

REPORT INFORMATION
  Report Type: 
  Country: None (occurrence: None)
  Receive Date: 20080129
  Receipt Date: 20071226
  Transmission Date: 20080703
  Serious: Yes (Hospitalization)
  Sender: FDA-Public Use
  Company Number: 2008EU000021

PATIENT
  Age: 64 Year
  Sex: Male

DRUGS (5)
  1. PROGRAF [Suspect]
     Indication: SKIN GRAFT
     Dosage: 5 MG, /D, IV NOS
     Route: 042
     Dates: start: 20070706, end: 20070801
  2. FLUCONAZOLE [Suspect]
     Indication: FEBRILE BONE MARROW APLASIA
     Dosage: /D, IV NOS
     Route: 042
     Dates: start: 20070716, end: 20070725
  3. CARVEDILOL [Suspect]
     Indication: CARDIAC FAILURE
     Dosage: /D, ORAL
     Route: 048
     Dates: start: 20070718, end: 20070724
  4. CELLCEPT [Concomitant]
  5. VANCOMYCIN HCL [Concomitant]

REACTIONS (19)
  - ACUTE PULMONARY OEDEMA [None]
  - AGITATION [None]
  - BLINDNESS CORTICAL [None]
  - CENTRAL VENOUS PRESSURE INCREASED [None]
  - CREATININE RENAL CLEARANCE DECREASED [None]
  - DIABETES MELLITUS [None]
  - DISORIENTATION [None]
  - DRUG INTERACTION [None]
  - DRUG TOXICITY [None]
  - EJECTION FRACTION DECREASED [None]
  - ENCEPHALITIS VIRAL [None]
  - HAEMOLYTIC ANAEMIA [None]
  - HALLUCINATION, VISUAL [None]
  - HYPERTENSION [None]
  - HYPOGAMMAGLOBULINAEMIA [None]
  - PYRAMIDAL TRACT SYNDROME [None]
  - RENAL FAILURE [None]
  - STAPHYLOCOCCAL INFECTION [None]
  - THERAPEUTIC PRODUCT CONTAMINATION [None]
